FAERS Safety Report 12498334 (Version 3)
Quarter: 2016Q3

REPORT INFORMATION
  Report Type: Report from Study
  Country: DE (occurrence: DE)
  Receive Date: 20160627
  Receipt Date: 20160810
  Transmission Date: 20161109
  Serious: Yes (Other)
  Sender: FDA-Public Use
  Company Number: DE-BAYER-2016-118189

PATIENT
  Age: 40 Year
  Sex: Female

DRUGS (2)
  1. BETAFERON [Suspect]
     Active Substance: INTERFERON BETA-1B
     Indication: MULTIPLE SCLEROSIS
     Dosage: 250 ?G, QOD
     Route: 058
     Dates: start: 20160101
  2. BETAFERON [Suspect]
     Active Substance: INTERFERON BETA-1B
     Indication: MULTIPLE SCLEROSIS
     Dosage: 62.5 ?G, QOD
     Route: 058
     Dates: start: 20160610

REACTIONS (3)
  - Stevens-Johnson syndrome [Recovering/Resolving]
  - Muscle spasms [Unknown]
  - Influenza like illness [Unknown]

NARRATIVE: CASE EVENT DATE: 201606
